FAERS Safety Report 5451125-3 (Version None)
Quarter: 2007Q3

REPORT INFORMATION
  Report Type: 
  Country: None (occurrence: None)
  Receive Date: 20070913
  Receipt Date: 20070621
  Transmission Date: 20080115
  Serious: Yes (Hospitalization)
  Sender: FDA-Public Use
  Company Number: GB-NOVOPROD-263983

PATIENT

DRUGS (1)
  1. NOVORAPID FLEXPEN [Suspect]
     Indication: DIABETES MELLITUS

REACTIONS (2)
  - DEVICE FAILURE [None]
  - HOSPITALISATION [None]
